FAERS Safety Report 8614522-0 (Version None)
Quarter: 2012Q3

REPORT INFORMATION
  Report Type: 
  Country: None (occurrence: None)
  Receive Date: 20120823
  Receipt Date: 20120820
  Transmission Date: 20120928
  Serious: Yes (Other)
  Sender: FDA-Public Use
  Company Number: PHHY2011CA11428

PATIENT
  Sex: Female
  Weight: 49.433 kg

DRUGS (4)
  1. SANDOSTATIN LAR [Suspect]
     Indication: THYROID CANCER
     Dosage: 30 MG, QMO
     Route: 030
     Dates: start: 20040713, end: 20070306
  2. SANDOSTATIN [Suspect]
     Indication: THYROID CANCER
     Dosage: 50 UG, UNK
     Route: 058
  3. SANDOSTATIN [Suspect]
     Dosage: 100 UG, BID
     Route: 058
     Dates: end: 20120223
  4. SANDOSTATIN LAR [Suspect]
     Dosage: 30 MG EVERY 3 WEEKS
     Route: 030
     Dates: end: 20070306

REACTIONS (25)
  - RECTAL HAEMORRHAGE [None]
  - WEIGHT DECREASED [None]
  - INJECTION SITE MASS [None]
  - FRUSTRATION [None]
  - POLLAKIURIA [None]
  - DIZZINESS [None]
  - BACK PAIN [None]
  - COUGH [None]
  - DRY EYE [None]
  - INJECTION SITE PAIN [None]
  - NAUSEA [None]
  - LYMPH NODE PAIN [None]
  - ALOPECIA [None]
  - DEPRESSED MOOD [None]
  - BLOOD PRESSURE DECREASED [None]
  - DIARRHOEA [None]
  - ANORECTAL DISCOMFORT [None]
  - INJECTION SITE ERYTHEMA [None]
  - ORAL DISCOMFORT [None]
  - NERVOUSNESS [None]
  - PAIN [None]
  - ASTHENIA [None]
  - HYPOAESTHESIA [None]
  - HAEMORRHOIDS [None]
  - ABDOMINAL DISTENSION [None]
